FAERS Safety Report 21622987 (Version 2)
Quarter: 2022Q4

REPORT INFORMATION
  Report Type: Spontaneous
  Country: AU (occurrence: AU)
  Receive Date: 20221121
  Receipt Date: 20221222
  Transmission Date: 20230113
  Serious: Yes (Hospitalization, Other)
  Sender: FDA-Public Use
  Company Number: AU-PIRAMAL CRITICAL CARE LIMITED-2022-PEL-000670

PATIENT

DRUGS (12)
  1. SEVOFLURANE [Suspect]
     Active Substance: SEVOFLURANE
     Indication: Maintenance of anaesthesia
     Dosage: UNK
     Route: 065
  2. SEVOFLURANE [Suspect]
     Active Substance: SEVOFLURANE
     Dosage: 8 PERCENT ON HIGH FLOWS OF 100% OXYGEN
     Route: 065
  3. SUCCINYLCHOLINE [Suspect]
     Active Substance: SUCCINYLCHOLINE
     Indication: Hypoventilation
     Dosage: 50 MILLIGRAM
     Route: 042
  4. FENTANYL [Concomitant]
     Active Substance: FENTANYL
     Indication: Induction of anaesthesia
     Dosage: 50 MICROGRAM
     Route: 042
  5. PROPOFOL [Concomitant]
     Active Substance: PROPOFOL
     Indication: Induction of anaesthesia
     Dosage: 50 MILLIGRAM
     Route: 042
  6. PROPOFOL [Concomitant]
     Active Substance: PROPOFOL
     Dosage: 100 MILLIGRAM, EMERGENCE FROM ANESTHESIA
     Route: 042
  7. PROPOFOL [Concomitant]
     Active Substance: PROPOFOL
     Dosage: 100 MILLIGRAM
     Route: 065
  8. OXYGEN [Concomitant]
     Active Substance: OXYGEN
     Indication: Maintenance of anaesthesia
     Route: 065
  9. FLUTICASONE                        /00972202/ [Concomitant]
     Indication: Asthma
  10. SALMETEROL [Concomitant]
     Active Substance: SALMETEROL
     Indication: Asthma
  11. SALBUTAMOL                         /00139502/ [Concomitant]
     Indication: Asthma
     Dosage: AS REQUIRED
  12. SALBUTAMOL                         /00139502/ [Concomitant]
     Indication: Wheezing
     Dosage: 1500 MICROGRAM OF INHALED SALBUTAMOL OVER A 15-MINUTE PERIOD.

REACTIONS (2)
  - Rhabdomyolysis [Recovering/Resolving]
  - Product use issue [Unknown]
